FAERS Safety Report 4808140-X (Version None)
Quarter: 2005Q4

REPORT INFORMATION
  Report Type: 
  Country: None (occurrence: None)
  Receive Date: 20051021
  Receipt Date: 20030507
  Transmission Date: 20060501
  Serious: Yes (Other)
  Sender: FDA-Public Use
  Company Number: USA030536452

PATIENT
  Age: 63 Year
  Sex: Female

DRUGS (2)
  1. ZYPREXA [Suspect]
     Indication: SCHIZOPHRENIA
     Dosage: 15 MG/DAY
     Dates: start: 20030502, end: 20030506
  2. EFFEXOR [Concomitant]

REACTIONS (5)
  - BREATH ODOUR [None]
  - DELUSION [None]
  - NEUTROPENIA [None]
  - ORAL INTAKE REDUCED [None]
  - WEIGHT DECREASED [None]
